FAERS Safety Report 5345617-5 (Version None)
Quarter: 2007Q2

REPORT INFORMATION
  Report Type: 
  Country: None (occurrence: None)
  Receive Date: 20070605
  Receipt Date: 20070327
  Transmission Date: 20071010
  Serious: No
  Sender: FDA-Public Use
  Company Number: US-ASTRAZENECA-2007UW06120

PATIENT
  Age: 81 Year
  Sex: Female

DRUGS (1)
  1. PRILOSEC [Suspect]
     Route: 048
     Dates: start: 20010101

REACTIONS (2)
  - CALCIUM DEFICIENCY [None]
  - OSTEOPOROSIS [None]
